FAERS Safety Report 5151735-7 (Version None)
Quarter: 2006Q4

REPORT INFORMATION
  Report Type: 
  Country: None (occurrence: None)
  Receive Date: 20061107
  Receipt Date: 20061017
  Transmission Date: 20070319
  Serious: Yes (Hospitalization, Other)
  Sender: FDA-Public Use
  Company Number: FR200610005415

PATIENT
  Age: 11 Year
  Sex: Female

DRUGS (6)
  1. ALIMTA [Suspect]
     Indication: MESOTHELIOMA MALIGNANT RECURRENT
     Dosage: 400 MG/M2, INTRAVENOUS ; 450 MG/M2 INTRAVENOUS
     Route: 042
     Dates: start: 20041102
  2. GEMZAR [Suspect]
     Indication: MESOTHELIOMA MALIGNANT RECURRENT
     Dosage: 800 MG INTRAVENOUS ; 1600 MG INTRAVENOUS
     Route: 042
     Dates: start: 20040601
  3. CARBOPLATIN [Concomitant]
  4. CISPLATIN [Concomitant]
  5. CYANOCOBALAMIN [Concomitant]
  6. FOLIC ACID [Concomitant]

REACTIONS (9)
  - ACUTE HEPATIC FAILURE [None]
  - CHOLESTASIS [None]
  - DRUG INEFFECTIVE [None]
  - HEPATIC ARTERY THROMBOSIS [None]
  - LIVER ABSCESS [None]
  - MULTI-ORGAN FAILURE [None]
  - NEUTROPENIA [None]
  - PYREXIA [None]
  - THROMBOCYTOPENIA [None]
